FAERS Safety Report 4607168-2 (Version None)
Quarter: 2005Q1

REPORT INFORMATION
  Report Type: 
  Country: None (occurrence: None)
  Receive Date: 20050311
  Receipt Date: 20050311
  Transmission Date: 20050727
  Serious: Yes (Hospitalization, Other)
  Sender: FDA-Public Use
  Company Number: None

PATIENT
  Age: 77 Year
  Sex: Male
  Weight: 64 kg

DRUGS (13)
  1. TEQUIN [Suspect]
     Indication: BRONCHITIS
     Dosage: 400MG DAILY IV
     Route: 042
     Dates: start: 20040616, end: 20040706
  2. DEXAMETHASONE [Concomitant]
  3. HUMULIN N [Concomitant]
  4. HUMULIN R [Concomitant]
  5. DILANTIN [Concomitant]
  6. PEPCID [Concomitant]
  7. TIGAN [Concomitant]
  8. ALBUTEROL [Concomitant]
  9. ULTRAM [Concomitant]
  10. FLOVENT [Concomitant]
  11. MEGACE [Concomitant]
  12. ULTRAM [Concomitant]
  13. BENADRYL [Concomitant]

REACTIONS (2)
  - HYPERGLYCAEMIA [None]
  - HYPOGLYCAEMIA [None]
